FAERS Safety Report 22628860 (Version 9)
Quarter: 2023Q4

REPORT INFORMATION
  Report Type: Spontaneous
  Country: CO (occurrence: CO)
  Receive Date: 20230622
  Receipt Date: 20231130
  Transmission Date: 20240110
  Serious: Yes (Other)
  Sender: FDA-Public Use
  Company Number: CO-PFIZER INC-PV202300106451

PATIENT
  Age: 12 Year
  Sex: Female

DRUGS (1)
  1. GENOTROPIN [Suspect]
     Active Substance: SOMATROPIN
     Indication: Short stature
     Dosage: 2 MG, 1X/DAY
     Route: 058
     Dates: start: 20210116

REACTIONS (13)
  - Device mechanical issue [Unknown]
  - Device information output issue [Unknown]
  - Injection site erythema [Unknown]
  - Injection site haemorrhage [Unknown]
  - Injection site bruising [Unknown]
  - Injection site pain [Not Recovered/Not Resolved]
  - Injection site injury [Unknown]
  - Drug dose omission by device [Unknown]
  - Device occlusion [Unknown]
  - Device end of service [Unknown]
  - Fear of injection [Unknown]
  - Expired device used [Unknown]
  - Device use issue [Unknown]

NARRATIVE: CASE EVENT DATE: 20230501
